FAERS Safety Report 26152259 (Version 1)
Quarter: 2025Q4

REPORT INFORMATION
  Report Type: Report from Study
  Country: EU (occurrence: EU)
  Receive Date: 20251214
  Receipt Date: 20251214
  Transmission Date: 20260117
  Serious: Yes (Hospitalization)
  Sender: ABBVIE
  Company Number: EU-ABBVIE-6369000

PATIENT
  Age: 72 Year
  Sex: Male

DRUGS (3)
  1. FOSCARBIDOPA\FOSLEVODOPA [Suspect]
     Active Substance: FOSCARBIDOPA\FOSLEVODOPA
     Indication: Parkinson^s disease
     Dosage: CRN: 0.30 ML/H, CR: 0.40 ML/H, CRH: 0.42 ML/H, ED: 0.30 ML.
     Route: 058
     Dates: start: 20250520, end: 20250520
  2. FOSCARBIDOPA\FOSLEVODOPA [Suspect]
     Active Substance: FOSCARBIDOPA\FOSLEVODOPA
     Dosage: CRN: 0.30 ML/H, CR: 0.40 ML/H, CRH: 0.44 ML/H, ED: 0.30 ML?LAST ADMIN DATE: 2025
     Route: 058
     Dates: start: 20250520
  3. FOSCARBIDOPA\FOSLEVODOPA [Suspect]
     Active Substance: FOSCARBIDOPA\FOSLEVODOPA
     Dosage: CRN: 0.30 ML/H, CR: 0.42 ML/H, CRH: 0.46 ML/H, ED: 3.0 ML
     Route: 058
     Dates: start: 2025

REACTIONS (3)
  - Osteoarthritis [Unknown]
  - Infusion site abscess [Recovering/Resolving]
  - Dermatitis contact [Not Recovered/Not Resolved]

NARRATIVE: CASE EVENT DATE: 20250101
